FAERS Safety Report 8798651 (Version 1)
Quarter: 2012Q4

REPORT INFORMATION
  Report Type: 
  Country: BR (occurrence: BR)
  Receive Date: 20120920
  Receipt Date: 20120920
  Transmission Date: 20130627
  Serious: Yes (Hospitalization, Other)
  Sender: FDA-Public Use
  Company Number: BR-PFIZER INC-2012228168

PATIENT
  Age: 86 Year
  Sex: Female
  Weight: 60 kg

DRUGS (11)
  1. XALATAN [Suspect]
     Indication: GLAUCOMA
     Dosage: 3 mg, (one drop each eye) 1x/day
     Route: 047
  2. SIMVASTATIN [Concomitant]
     Indication: CARDIAC DISORDER
     Dosage: 1 tablet daily
     Dates: start: 2002
  3. DILTIAZEM HYDROCHLORIDE [Concomitant]
     Indication: CARDIAC DISORDER
     Dosage: 1 tablet 1x/day
     Dates: start: 2002
  4. DORMONID [Concomitant]
     Indication: SLEEP DISORDER
     Dosage: 15 mg, one tablet occasionally
     Dates: start: 2002
  5. LEXOTAN [Concomitant]
     Indication: RELAXATION THERAPY
     Dosage: 6 mg, 1x/day
     Dates: start: 2002
  6. MONOCORDIL [Concomitant]
     Indication: CARDIAC DISORDER
     Dosage: 2 tablets daily
     Dates: start: 2002
  7. RIVOTRIL [Concomitant]
     Indication: CARDIAC DISORDER
     Dosage: 2 mg, 1x/day
     Dates: start: 2002
  8. ZADITEN [Concomitant]
     Indication: ANTIALLERGIC THERAPY
     Dosage: 1 drop each eye, unspecified frequency
     Route: 047
     Dates: start: 2002
  9. IMOSEC [Concomitant]
  10. NIMESULIDE [Concomitant]
  11. LOPERAMIDE HYDROCHLORIDE [Concomitant]
     Dosage: UNK

REACTIONS (7)
  - Cardiac disorder [Unknown]
  - Bedridden [Not Recovered/Not Resolved]
  - Ocular hyperaemia [Unknown]
  - Fear [Unknown]
  - Hypertension [Unknown]
  - Diarrhoea [Unknown]
  - Hypersensitivity [Unknown]
